FAERS Safety Report 6078233-0 (Version None)
Quarter: 2009Q1

REPORT INFORMATION
  Report Type: 
  Country: None (occurrence: None)
  Receive Date: 20090213
  Receipt Date: 20090203
  Transmission Date: 20090719
  Serious: Yes (Death)
  Sender: FDA-Public Use
  Company Number: US-ELI_LILLY_AND_COMPANY-US200902001147

PATIENT
  Age: 46 Year
  Sex: Male

DRUGS (4)
  1. ZYPREXA [Suspect]
     Dosage: 15 MG, UNK
  2. WELLBUTRIN SR [Concomitant]
  3. BUSPAR [Concomitant]
  4. DOXEPIN HCL [Concomitant]

REACTIONS (5)
  - COMPLETED SUICIDE [None]
  - DRUG TOXICITY [None]
  - EMPHYSEMA [None]
  - MEDICATION RESIDUE [None]
  - UNRESPONSIVE TO STIMULI [None]
